FAERS Safety Report 5932152-6 (Version None)
Quarter: 2008Q4

REPORT INFORMATION
  Report Type: 
  Country: None (occurrence: None)
  Receive Date: 20081028
  Receipt Date: 20081015
  Transmission Date: 20090506
  Serious: No
  Sender: FDA-Public Use
  Company Number: GB-PFIZER INC-2006135469

PATIENT
  Age: 22 Year
  Sex: Female

DRUGS (9)
  1. PREDNISOLONE [Suspect]
     Indication: IMMUNOSUPPRESSION
  2. PREDNISOLONE [Suspect]
     Indication: HEART TRANSPLANT
  3. PREDNISOLONE [Suspect]
     Indication: LUNG TRANSPLANT
  4. CYCLOSPORINE [Suspect]
     Indication: IMMUNOSUPPRESSION
  5. CYCLOSPORINE [Suspect]
     Indication: HEART TRANSPLANT
  6. CYCLOSPORINE [Suspect]
     Indication: LUNG TRANSPLANT
  7. AZATHIOPRINE [Suspect]
     Indication: IMMUNOSUPPRESSION
  8. AZATHIOPRINE [Suspect]
     Indication: HEART TRANSPLANT
  9. AZATHIOPRINE [Suspect]
     Indication: LUNG TRANSPLANT

REACTIONS (1)
  - NO ADVERSE EVENT [None]
